FAERS Safety Report 5189756-0 (Version None)
Quarter: 2006Q4

REPORT INFORMATION
  Report Type: 
  Country: None (occurrence: None)
  Receive Date: 20061215
  Receipt Date: 20061129
  Transmission Date: 20070319
  Serious: Yes (Hospitalization)
  Sender: FDA-Public Use
  Company Number: 233695

PATIENT
  Age: 69 Year
  Sex: Male

DRUGS (5)
  1. AVASTIN [Suspect]
     Indication: COLORECTAL CANCER
     Dosage: 548 MG, QD, INTRAVENOUS
     Route: 042
     Dates: start: 20061110
  2. CAPECITABINE [Suspect]
     Indication: COLORECTAL CANCER
     Dosage: 3600 MG, QD, ORAL
     Route: 048
     Dates: start: 20061109
  3. OXALIPLATIN [Suspect]
     Indication: COLORECTAL CANCER
     Dosage: 240 MG, QD, INTRAVENOUS
     Route: 042
     Dates: start: 20061109
  4. OMEPRAZOLE [Concomitant]
  5. UNKNOWN MEDICATION (GENERIC COMPOENENT(S) [Concomitant]

REACTIONS (2)
  - MALAISE [None]
  - PYREXIA [None]
